FAERS Safety Report 14845936 (Version 1)
Quarter: 2018Q2

REPORT INFORMATION
  Report Type: Spontaneous
  Country: US (occurrence: US)
  Receive Date: 20180504
  Receipt Date: 20180504
  Transmission Date: 20180711
  Serious: Yes (Hospitalization)
  Sender: FDA-Public Use
  Company Number: US-ROCHE-2117115

PATIENT
  Age: 72 Year
  Sex: Female

DRUGS (6)
  1. ESBRIET [Suspect]
     Active Substance: PIRFENIDONE
     Indication: IDIOPATHIC PULMONARY FIBROSIS
     Dosage: 1 TABLET THREE TIMES DAY FORM DAY 1 TO DAY 7, 2 TABLETS THRISE A DAY FROM DAY 8 TO DAY 14 AND 3 TABL
     Route: 048
     Dates: start: 20180320
  2. ASPIRIN. [Concomitant]
     Active Substance: ASPIRIN
  3. CLOPIDOGREL [Concomitant]
     Active Substance: CLOPIDOGREL BISULFATE
  4. LEVOTHYROXIN [Concomitant]
     Active Substance: LEVOTHYROXINE
  5. HUMALOG [Concomitant]
     Active Substance: INSULIN LISPRO
  6. SIMVASTATIN. [Concomitant]
     Active Substance: SIMVASTATIN

REACTIONS (6)
  - Diarrhoea [Unknown]
  - Hypertension [Unknown]
  - Headache [Unknown]
  - Cough [Unknown]
  - Abdominal pain upper [Unknown]
  - Drug dose omission [Unknown]

NARRATIVE: CASE EVENT DATE: 20180320
